FAERS Safety Report 4620946-9 (Version None)
Quarter: 2005Q1

REPORT INFORMATION
  Report Type: 
  Country: None (occurrence: None)
  Receive Date: 20050325
  Receipt Date: 20050307
  Transmission Date: 20050727
  Serious: Yes (Death)
  Sender: FDA-Public Use
  Company Number: A01200501284

PATIENT
  Age: 57 Year
  Sex: Female

DRUGS (3)
  1. STILNOX - (ZOLPIDEM) [Suspect]
     Dosage: 10 MG
     Route: 048
  2. XANAX [Suspect]
     Dosage: 2 MG
     Route: 048
  3. AVANZA - (MIRTAZAPINE) [Suspect]
     Dosage: 60 MG
     Route: 048

REACTIONS (1)
  - MYOCARDITIS [None]
